FAERS Safety Report 5789374-7 (Version None)
Quarter: 2008Q2

REPORT INFORMATION
  Report Type: 
  Country: None (occurrence: None)
  Receive Date: 20080625
  Receipt Date: 20080625
  Transmission Date: 20081010
  Serious: Yes (Hospitalization)
  Sender: FDA-Public Use
  Company Number: None

PATIENT
  Age: 72 Year
  Sex: Female

DRUGS (6)
  1. LISINOPRIL [Suspect]
     Indication: HYPERTENSION
     Dosage: ORAL;10.0 MILLIGRAM
     Route: 048
     Dates: start: 20070529, end: 20080415
  2. ASPIRIN [Concomitant]
  3. TRAMADOL HCL [Concomitant]
  4. GABAPENTIN [Concomitant]
  5. ATENOLOL [Concomitant]
  6. ATORVASTATIN CALCIUM [Concomitant]

REACTIONS (1)
  - LIP SWELLING [None]
